FAERS Safety Report 26186641 (Version 1)
Quarter: 2025Q4

REPORT INFORMATION
  Report Type: Spontaneous
  Country: US (occurrence: None)
  Receive Date: 20251219
  Receipt Date: 20251219
  Transmission Date: 20260117
  Serious: Yes (Hospitalization)
  Sender: FDA-CTU
  Company Number: None

PATIENT
  Age: 25 Year
  Sex: Male
  Weight: 58.5 kg

DRUGS (1)
  1. RISPERIDONE [Suspect]
     Active Substance: RISPERIDONE
     Indication: Schizophrenia
     Dosage: 1 MG  HS PO
     Route: 048
     Dates: start: 20250804, end: 20250812

REACTIONS (5)
  - Suicidal ideation [None]
  - Rhabdomyolysis [None]
  - Drug screen positive [None]
  - Urine alcohol test positive [None]
  - Urine cannabinoids increased [None]

NARRATIVE: CASE EVENT DATE: 20250810
